FAERS Safety Report 19008810 (Version 1)
Quarter: 2021Q1

REPORT INFORMATION
  Report Type: Spontaneous
  Country: IN (occurrence: IN)
  Receive Date: 20210316
  Receipt Date: 20210316
  Transmission Date: 20210420
  Serious: Yes (Other)
  Sender: FDA-Public Use
  Company Number: IN-CADILA HEALTHCARE LIMITED-IN-ZYDUS-062755

PATIENT

DRUGS (1)
  1. AZATHIOPRINE. [Suspect]
     Active Substance: AZATHIOPRINE
     Indication: AUTOIMMUNE HAEMOLYTIC ANAEMIA
     Dosage: 1.5 MILLIGRAM/KILOGRAM, QD
     Route: 065

REACTIONS (3)
  - Alopecia [Recovering/Resolving]
  - Mouth ulceration [Recovering/Resolving]
  - Leukopenia [Recovering/Resolving]
